FAERS Safety Report 6416553-8 (Version None)
Quarter: 2009Q4

REPORT INFORMATION
  Report Type: 
  Country: None (occurrence: None)
  Receive Date: 20091027
  Receipt Date: 20091023
  Transmission Date: 20100525
  Serious: Yes (Life-Threatening)
  Sender: FDA-Public Use
  Company Number: PHHY2009CA46161

PATIENT
  Sex: Male

DRUGS (1)
  1. SANDOSTATIN LAR [Suspect]
     Indication: COLORECTAL CANCER METASTATIC
     Dosage: 20 MG, QMO
     Route: 030
     Dates: start: 20091013

REACTIONS (1)
  - GENERAL PHYSICAL HEALTH DETERIORATION [None]
